FAERS Safety Report 4440844-3 (Version None)
Quarter: 2004Q3

REPORT INFORMATION
  Report Type: 
  Country: None (occurrence: None)
  Receive Date: 20040903
  Receipt Date: 20040823
  Transmission Date: 20050211
  Serious: Yes (Other)
  Sender: FDA-Public Use
  Company Number: DK-GLAXOSMITHKLINE-B0343749A

PATIENT
  Sex: Male

DRUGS (2)
  1. ZYBAN [Suspect]
     Indication: SMOKING CESSATION THERAPY
     Route: 048
     Dates: start: 20040726
  2. ALCOHOL [Concomitant]

REACTIONS (4)
  - AGGRESSION [None]
  - ILL-DEFINED DISORDER [None]
  - LACERATION [None]
  - WOUND [None]
